FAERS Safety Report 18943149 (Version 4)
Quarter: 2021Q4

REPORT INFORMATION
  Report Type: Report from Study
  Country: CR (occurrence: CR)
  Receive Date: 20210226
  Receipt Date: 20211124
  Transmission Date: 20220303
  Serious: Yes (Other)
  Sender: FDA-Public Use
  Company Number: CR-ABBVIE-21K-039-3782199-00

PATIENT
  Age: 53 Year
  Sex: Female
  Weight: 79.904 kg

DRUGS (3)
  1. HUMIRA [Suspect]
     Active Substance: ADALIMUMAB
     Indication: Ankylosing spondylitis
     Route: 058
     Dates: start: 20110407, end: 20211013
  2. CALCIUM DOBESILATE [Suspect]
     Active Substance: CALCIUM DOBESILATE
     Indication: Phlebitis
     Route: 065
     Dates: start: 2020, end: 2020
  3. CALCIUM DOBESILATE [Suspect]
     Active Substance: CALCIUM DOBESILATE
     Indication: Skin ulcer

REACTIONS (23)
  - Skin ulcer [Recovering/Resolving]
  - Ulcer [Recovering/Resolving]
  - Osteoarthritis [Recovering/Resolving]
  - Arthropathy [Recovering/Resolving]
  - Gastric ulcer [Recovered/Resolved]
  - Vulvovaginal dryness [Unknown]
  - Drug hypersensitivity [Recovering/Resolving]
  - Sleep apnoea syndrome [Recovering/Resolving]
  - Epigastric discomfort [Recovering/Resolving]
  - Phlebitis [Recovering/Resolving]
  - Pruritus allergic [Recovering/Resolving]
  - Pruritus [Recovering/Resolving]
  - Oedema peripheral [Recovering/Resolving]
  - Pain in extremity [Recovering/Resolving]
  - Cellulitis [Recovering/Resolving]
  - Rhinitis [Recovering/Resolving]
  - Pyrexia [Recovering/Resolving]
  - Inflammation [Recovering/Resolving]
  - Gastritis [Recovering/Resolving]
  - Nausea [Recovering/Resolving]
  - Dizziness [Recovering/Resolving]
  - Hypotension [Recovering/Resolving]
  - Full blood count abnormal [Recovering/Resolving]

NARRATIVE: CASE EVENT DATE: 20131101
